FAERS Safety Report 25807571 (Version 1)
Quarter: 2025Q3

REPORT INFORMATION
  Report Type: Spontaneous
  Country: US (occurrence: US)
  Receive Date: 20250916
  Receipt Date: 20250916
  Transmission Date: 20251021
  Serious: No
  Sender: ABBVIE
  Company Number: US-ABBVIE-6455640

PATIENT
  Sex: Female

DRUGS (1)
  1. UPADACITINIB [Suspect]
     Active Substance: UPADACITINIB
     Indication: Dermatitis atopic
     Route: 048

REACTIONS (14)
  - COVID-19 [Not Recovered/Not Resolved]
  - Acne [Unknown]
  - Staphylococcal infection [Unknown]
  - Illness [Unknown]
  - Menopause [Unknown]
  - Gastroenteritis viral [Unknown]
  - Rash [Not Recovered/Not Resolved]
  - Frustration tolerance decreased [Not Recovered/Not Resolved]
  - Cyst [Unknown]
  - Blood cholesterol increased [Not Recovered/Not Resolved]
  - Dry skin [Not Recovered/Not Resolved]
  - Papule [Unknown]
  - Headache [Not Recovered/Not Resolved]
  - Depression [Not Recovered/Not Resolved]
